FAERS Safety Report 8507754-3 (Version None)
Quarter: 2012Q3

REPORT INFORMATION
  Report Type: 
  Country: None (occurrence: None)
  Receive Date: 20120709
  Receipt Date: 20120709
  Transmission Date: 20120928
  Serious: No
  Sender: FDA-Public Use
  Company Number: None

PATIENT

DRUGS (2)
  1. VIRAMUNE XR [Suspect]
     Dosage: TABLET ORAL
     Route: 048
  2. VIRAMUNE [Suspect]
     Dosage: TABLET ORAL
     Route: 048

REACTIONS (5)
  - INCORRECT DOSE ADMINISTERED [None]
  - PRODUCT COLOUR ISSUE [None]
  - PRODUCT SHAPE ISSUE [None]
  - MEDICATION ERROR [None]
  - PRODUCT SIZE ISSUE [None]
